FAERS Safety Report 10162658 (Version 1)
Quarter: 2014Q2

REPORT INFORMATION
  Report Type: Spontaneous
  Country: US (occurrence: US)
  Receive Date: 20140509
  Receipt Date: 20140509
  Transmission Date: 20141212
  Serious: No
  Sender: FDA-Public Use
  Company Number: US-PFIZER INC-2014128278

PATIENT
  Sex: Male

DRUGS (1)
  1. LYRICA [Suspect]
     Indication: DIABETIC NEPHROPATHY
     Dosage: UNK, DAILY (BETWEEN 150-225MG)
     Dates: start: 2013

REACTIONS (6)
  - Peripheral swelling [Unknown]
  - Joint swelling [Unknown]
  - Dizziness [Unknown]
  - Hypersomnia [Unknown]
  - Therapeutic response changed [Unknown]
  - Ex-tobacco user [Unknown]
